FAERS Safety Report 23036278 (Version 3)
Quarter: 2024Q4

REPORT INFORMATION
  Report Type: Spontaneous
  Country: CA (occurrence: CA)
  Receive Date: 20231006
  Receipt Date: 20241018
  Transmission Date: 20250115
  Serious: Yes (Congenital Anomaly, Other)
  Sender: GLAXOSMITHKLINE
  Company Number: CA-GLAXOSMITHKLINE-CA2023AMR134033

PATIENT

DRUGS (22)
  1. FLUTICASONE FUROATE [Suspect]
     Active Substance: FLUTICASONE FUROATE
     Indication: Product used for unknown indication
     Dosage: UNK
     Route: 064
  2. FLUTICASONE FUROATE [Suspect]
     Active Substance: FLUTICASONE FUROATE
     Indication: Foetal exposure during pregnancy
  3. FLUTICASONE FUROATE [Suspect]
     Active Substance: FLUTICASONE FUROATE
     Indication: Maternal exposure during pregnancy
  4. DUPILUMAB [Suspect]
     Active Substance: DUPILUMAB
     Indication: Product used for unknown indication
     Dosage: UNK
     Route: 064
  5. DUPILUMAB [Suspect]
     Active Substance: DUPILUMAB
     Indication: Foetal exposure during pregnancy
  6. MIRTAZAPINE [Suspect]
     Active Substance: MIRTAZAPINE
     Indication: Product used for unknown indication
     Dosage: UNK
     Route: 064
  7. MIRTAZAPINE [Suspect]
     Active Substance: MIRTAZAPINE
     Indication: Foetal exposure during pregnancy
  8. MIRTAZAPINE [Suspect]
     Active Substance: MIRTAZAPINE
     Indication: Maternal exposure during pregnancy
  9. OMALIZUMAB [Suspect]
     Active Substance: OMALIZUMAB
     Indication: Product used for unknown indication
     Dosage: UNK
     Route: 064
  10. OMALIZUMAB [Suspect]
     Active Substance: OMALIZUMAB
     Indication: Foetal exposure during pregnancy
  11. OMALIZUMAB [Suspect]
     Active Substance: OMALIZUMAB
     Indication: Maternal exposure during pregnancy
  12. PREDNISONE [Suspect]
     Active Substance: PREDNISONE
     Indication: Product used for unknown indication
     Dosage: 20 MG, QD
     Route: 064
  13. PREDNISONE [Suspect]
     Active Substance: PREDNISONE
     Indication: Foetal exposure during pregnancy
  14. PREDNISONE [Suspect]
     Active Substance: PREDNISONE
     Indication: Maternal exposure during pregnancy
  15. TIOTROPIUM [Suspect]
     Active Substance: TIOTROPIUM
     Indication: Product used for unknown indication
     Dosage: UNK
     Route: 064
  16. TIOTROPIUM [Suspect]
     Active Substance: TIOTROPIUM
     Indication: Foetal exposure during pregnancy
  17. TIOTROPIUM [Suspect]
     Active Substance: TIOTROPIUM
     Indication: Maternal exposure during pregnancy
  18. VILANTEROL [Suspect]
     Active Substance: VILANTEROL
     Indication: Product used for unknown indication
     Dosage: UNK
     Route: 064
  19. VILANTEROL [Suspect]
     Active Substance: VILANTEROL
     Indication: Foetal exposure during pregnancy
  20. VILANTEROL [Suspect]
     Active Substance: VILANTEROL
     Indication: Maternal exposure during pregnancy
  21. DUPIXENT [Suspect]
     Active Substance: DUPILUMAB
     Indication: Maternal exposure during pregnancy
     Dosage: UNK
     Route: 064
  22. OXYGEN [Suspect]
     Active Substance: OXYGEN
     Indication: Maternal exposure during pregnancy
     Dosage: 3 L
     Route: 064

REACTIONS (11)
  - Cleft palate [Unknown]
  - Congenital hypogonadotropic hypogonadism [Unknown]
  - Hypothalamo-pituitary disorder [Unknown]
  - Foetal exposure during pregnancy [Unknown]
  - Hypopituitarism [Unknown]
  - Pharyngeal disorder [Unknown]
  - Premature baby [Unknown]
  - Hypopituitarism foetal [Unknown]
  - Secondary hypogonadism [Unknown]
  - Congenital pharyngeal anomaly [Unknown]
  - Pituitary stalk interruption syndrome [Unknown]
